FAERS Safety Report 4699834-8 (Version None)
Quarter: 2005Q2

REPORT INFORMATION
  Report Type: 
  Country: None (occurrence: None)
  Receive Date: 20050623
  Receipt Date: 20050621
  Transmission Date: 20051028
  Serious: Yes (Death)
  Sender: FDA-Public Use
  Company Number: 200510553BWH

PATIENT
  Age: 68 Year
  Sex: Male

DRUGS (6)
  1. LEVITRA [Suspect]
     Dosage: ORAL
     Route: 048
     Dates: end: 20060501
  2. THEOPHYLENE [Concomitant]
  3. LIBRIUM [Concomitant]
  4. ACETAMINOPHEN W/ CODEINE [Concomitant]
  5. ZANTAC [Concomitant]
  6. PREDNISONE TAB [Concomitant]

REACTIONS (1)
  - CARDIAC FAILURE CONGESTIVE [None]
